FAERS Safety Report 5594654-4 (Version None)
Quarter: 2008Q1

REPORT INFORMATION
  Report Type: 
  Country: None (occurrence: None)
  Receive Date: 20080115
  Receipt Date: 20071221
  Transmission Date: 20080703
  Serious: Yes (Other)
  Sender: FDA-Public Use
  Company Number: 2007AP001290

PATIENT
  Age: 75 Year
  Sex: Male

DRUGS (9)
  1. APO-PENTOXIFYLLINE SR (PENTOXIFYLLINE) [Suspect]
     Indication: RAYNAUD'S PHENOMENON
     Dosage: 400 MG; TAB; PO; TID, 400 MG; TAB; PO; TID, 400 MG; TAB; PO; TID
     Route: 048
     Dates: start: 20050101, end: 20060101
  2. APO-PENTOXIFYLLINE SR (PENTOXIFYLLINE) [Suspect]
     Indication: RAYNAUD'S PHENOMENON
     Dosage: 400 MG; TAB; PO; TID, 400 MG; TAB; PO; TID, 400 MG; TAB; PO; TID
     Route: 048
     Dates: start: 20060101, end: 20070101
  3. APO-PENTOXIFYLLINE SR (PENTOXIFYLLINE) [Suspect]
     Indication: RAYNAUD'S PHENOMENON
     Dosage: 400 MG; TAB; PO; TID, 400 MG; TAB; PO; TID, 400 MG; TAB; PO; TID
     Route: 048
     Dates: start: 20050101
  4. APO-PENTOXIFYLLINE SR (PENTOXIFYLLINE) [Suspect]
     Indication: RAYNAUD'S PHENOMENON
     Dosage: 400 MG; TAB; PO; TID, 400 MG; TAB; PO; TID, 400 MG; TAB; PO; TID
     Route: 048
     Dates: start: 20071001
  5. ATORVASTATIN CALCIUM [Concomitant]
  6. LANSOPRAZOLE [Concomitant]
  7. HYDROCHLOROTHIAZIDE [Concomitant]
  8. RAMIPRIL [Concomitant]
  9. ACETYLSALICYLIC ACID SRT [Concomitant]

REACTIONS (4)
  - DRUG INEFFECTIVE [None]
  - DRY SKIN [None]
  - EPISTAXIS [None]
  - PROSTATE CANCER RECURRENT [None]
